FAERS Safety Report 7376660-2 (Version None)
Quarter: 2011Q1

REPORT INFORMATION
  Report Type: 
  Country: None (occurrence: None)
  Receive Date: 20110325
  Receipt Date: 20110321
  Transmission Date: 20110831
  Serious: Yes (Hospitalization, Other)
  Sender: FDA-Public Use
  Company Number: FR-PFIZER INC-2011062729

PATIENT
  Age: 58 Year
  Sex: Male

DRUGS (1)
  1. RHINADVIL [Suspect]
     Dosage: 2 DF, 1X/DAY
     Route: 048
     Dates: start: 20100115, end: 20100117

REACTIONS (5)
  - AMNESIA [None]
  - ABNORMAL BEHAVIOUR [None]
  - CSF WHITE BLOOD CELL COUNT INCREASED [None]
  - ENCEPHALITIS [None]
  - SOMNOLENCE [None]
